FAERS Safety Report 8342071-6 (Version None)
Quarter: 2012Q2

REPORT INFORMATION
  Report Type: 
  Country: None (occurrence: None)
  Receive Date: 20120507
  Receipt Date: 20120424
  Transmission Date: 20120825
  Serious: Yes (Congenital Anomaly)
  Sender: FDA-Public Use
  Company Number: SA-MYLANLABS-2012S1008798

PATIENT
  Sex: Female

DRUGS (1)
  1. LETROZOLE [Suspect]
     Indication: OVULATION INDUCTION
     Dosage: 5 MG/DAY FROM CYCLE DAY 2
     Route: 064

REACTIONS (2)
  - MICROTIA [None]
  - MATERNAL EXPOSURE BEFORE PREGNANCY [None]
